FAERS Safety Report 13418155 (Version 2)
Quarter: 2017Q2

REPORT INFORMATION
  Report Type: Spontaneous
  Country: US (occurrence: US)
  Receive Date: 20170407
  Receipt Date: 20170419
  Transmission Date: 20170830
  Serious: Yes (Other)
  Sender: FDA-Public Use
  Company Number: US-SA-2017SA056908

PATIENT
  Sex: Male

DRUGS (1)
  1. ACT DRY MOUTH SPRAY [Suspect]
     Active Substance: DEVICE
     Dosage: DOSE STRENGTH- 1 FL OZ?DOSE FORM -MOUTH SPRAY
     Route: 065

REACTIONS (2)
  - Burn oral cavity [Unknown]
  - Oral mucosal erythema [Unknown]

NARRATIVE: CASE EVENT DATE: 20170325
